FAERS Safety Report 19685633 (Version 1)
Quarter: 2021Q3

REPORT INFORMATION
  Report Type: Spontaneous
  Country: DE (occurrence: DE)
  Receive Date: 20210811
  Receipt Date: 20210811
  Transmission Date: 20211014
  Serious: Yes (Other)
  Sender: FDA-Public Use
  Company Number: DE-SUN PHARMACEUTICAL INDUSTRIES LTD-2021RR-307465

PATIENT
  Age: 26 Year
  Sex: Female

DRUGS (6)
  1. SERTRALINE [Suspect]
     Active Substance: SERTRALINE HYDROCHLORIDE
     Dosage: 125 MILLIGRAM, DAILY
     Route: 065
  2. HYPNOREX RET (ESSENTIAL PHARMA LTD) [Suspect]
     Active Substance: LITHIUM CARBONATE
     Indication: BIPOLAR I DISORDER
     Dosage: 1000 MILLIGRAM, DAILY, 1?0?0?1 1/2 400 MG?TABLETS
     Route: 065
  3. HYPNOREX RET (ESSENTIAL PHARMA LTD) [Suspect]
     Active Substance: LITHIUM CARBONATE
     Dosage: 1200 MILLIGRAM, DAILY, 1 1/2?0?0?1 1/2 400 MG?TABLETS
     Route: 065
  4. HYPNOREX RET (ESSENTIAL PHARMA LTD) [Suspect]
     Active Substance: LITHIUM CARBONATE
     Dosage: 1000 MILLIGRAM, DAILY, 1 1/2?0?0?2 400 MG?TABLETS
     Route: 065
  5. SERTRALINE [Suspect]
     Active Substance: SERTRALINE HYDROCHLORIDE
     Indication: BIPOLAR I DISORDER
     Dosage: 150 MILLIGRAM, DAILY
     Route: 065
  6. HYPNOREX RET (ESSENTIAL PHARMA LTD) [Suspect]
     Active Substance: LITHIUM CARBONATE
     Dosage: 1000 MILLIGRAM, DAILY, 1?0?0?1 1/2 400 MG?TABLETS
     Route: 065

REACTIONS (2)
  - Exposure during pregnancy [Unknown]
  - Exposure via breast milk [Unknown]
